FAERS Safety Report 9780514 (Version 2)
Quarter: 2013Q4

REPORT INFORMATION
  Report Type: Spontaneous
  Country: US (occurrence: US)
  Receive Date: 20131224
  Receipt Date: 20131224
  Transmission Date: 20140711
  Serious: Yes (Hospitalization, Other)
  Sender: FDA-Public Use
  Company Number: US-ABBVIE-13P-163-1178904-00

PATIENT
  Age: 42 Year
  Sex: Female

DRUGS (23)
  1. HUMIRA [Suspect]
     Indication: PSORIATIC ARTHROPATHY
     Dosage: A FEW MONTHS
     Dates: start: 2009, end: 2009
  2. HUMIRA [Suspect]
     Indication: PSORIASIS
     Dates: start: 2009, end: 2009
  3. HUMIRA [Suspect]
     Dates: start: 2009
  4. NEXIUM [Concomitant]
     Indication: DYSPEPSIA
  5. NEXIUM [Concomitant]
     Indication: GASTROOESOPHAGEAL REFLUX DISEASE
  6. ZYRTEC [Concomitant]
     Indication: HYPERSENSITIVITY
  7. ZYRTEC [Concomitant]
     Indication: SEASONAL ALLERGY
  8. INTROVALE [Concomitant]
     Indication: ORAL CONTRACEPTION
  9. GLUCOSAMINE/CHONDROITIN [Concomitant]
     Indication: ARTHRALGIA
  10. MULTIVITAMIN [Concomitant]
     Indication: VITAMIN SUPPLEMENTATION
  11. CITRACAL [Concomitant]
     Indication: MINERAL SUPPLEMENTATION
  12. ADVAIR [Concomitant]
     Indication: ASTHMA
     Dosage: INHALER
  13. PROAIR [Concomitant]
     Indication: ASTHMA
     Dosage: INHALER
     Dates: start: 201312
  14. SINGULAIR [Concomitant]
     Indication: ASTHMA
  15. VALTREX [Concomitant]
     Indication: ORAL HERPES
  16. ATARAX [Concomitant]
     Indication: PRURITUS
  17. GAVISCON [Concomitant]
     Indication: ANTACID THERAPY
  18. CLOBEX [Concomitant]
     Indication: PSORIASIS
     Dosage: LOTION
  19. BETAMETHASONE [Concomitant]
     Indication: PSORIASIS
  20. PREVALITE [Concomitant]
     Indication: DIARRHOEA
     Dosage: POWDER
  21. HYOSCYAMINE [Concomitant]
     Indication: ABDOMINAL PAIN UPPER
  22. MELOXICAM [Concomitant]
     Indication: ARTHRALGIA
  23. DICLOFENAC/BACLOFEN/BUPIVACAINE/IBUPROFEN/PENTOXIFYLLINE/LIPO [Concomitant]
     Indication: PAIN

REACTIONS (5)
  - Pleurisy [Recovering/Resolving]
  - Pneumonia [Not Recovered/Not Resolved]
  - Abdominal pain [Recovered/Resolved]
  - Dyspnoea [Not Recovered/Not Resolved]
  - Cough [Not Recovered/Not Resolved]
